FAERS Safety Report 9198937 (Version 2)
Quarter: 2013Q2

REPORT INFORMATION
  Report Type: Spontaneous
  Country: ES (occurrence: None)
  Receive Date: 20130326
  Receipt Date: 20130529
  Transmission Date: 20140414
  Serious: Yes (Other)
  Sender: FDA-Public Use
  Company Number: ES-1197171

PATIENT
  Age: 89 Year
  Sex: Female
  Weight: 60 kg

DRUGS (4)
  1. BSS INTRAOCULAR SOLUTION (BSS) [Suspect]
     Indication: CATARACT OPERATION
     Route: 031
     Dates: start: 20130227, end: 20130227
  2. DUOVISC [Concomitant]
  3. ADRENALINE [Concomitant]
  4. BETADINE [Concomitant]

REACTIONS (3)
  - Toxic anterior segment syndrome [None]
  - Off label use [None]
  - Product contamination microbial [None]
